FAERS Safety Report 24083795 (Version 1)
Quarter: 2024Q3

REPORT INFORMATION
  Report Type: Report from Study
  Country: US (occurrence: US)
  Receive Date: 20240712
  Receipt Date: 20240712
  Transmission Date: 20241017
  Serious: No
  Sender: ACADIA PHARMACEUTICALS
  Company Number: US-ACADIA PHARMACEUTICALS INC.-ACA-2024-PIM-002897

PATIENT
  Age: 78 Year
  Sex: Female

DRUGS (6)
  1. NUPLAZID [Suspect]
     Active Substance: PIMAVANSERIN TARTRATE
     Indication: Parkinson^s disease psychosis
     Dosage: 34 MILLIGRAM, QD
     Route: 048
     Dates: start: 20240510, end: 20240520
  2. SINEMET [Concomitant]
     Active Substance: CARBIDOPA\LEVODOPA
     Dosage: 25/100
     Dates: start: 2016
  3. RIVASTIGMINE [Concomitant]
     Active Substance: RIVASTIGMINE
     Dosage: UNK
     Dates: start: 2020
  4. HUPERZINE A [Concomitant]
     Active Substance: HUPERZINE A
     Dosage: UNK
     Dates: start: 2018
  5. AMLODIPINE [Concomitant]
     Active Substance: AMLODIPINE BESYLATE
     Dosage: UNK
     Dates: start: 2022
  6. ROSUVASTATIN [Concomitant]
     Active Substance: ROSUVASTATIN
     Dosage: UNK
     Dates: start: 2020

REACTIONS (5)
  - Fatigue [Recovered/Resolved]
  - Illness [Recovered/Resolved]
  - Drug ineffective [Unknown]
  - Hallucination [Recovered/Resolved]
  - Somnolence [Recovered/Resolved]

NARRATIVE: CASE EVENT DATE: 20240512
